FAERS Safety Report 18266914 (Version 1)
Quarter: 2020Q3

REPORT INFORMATION
  Report Type: Spontaneous
  Country: BR (occurrence: BR)
  Receive Date: 20200915
  Receipt Date: 20200915
  Transmission Date: 20201103
  Serious: Yes (Hospitalization)
  Sender: FDA-Public Use
  Company Number: BR-ROCHE-2677535

PATIENT
  Age: 16 Year
  Sex: Female

DRUGS (5)
  1. AZITHROMYCIN ANHYDROUS. [Concomitant]
     Active Substance: AZITHROMYCIN ANHYDROUS
  2. MABTHERA [Suspect]
     Active Substance: RITUXIMAB
     Indication: NEUROMYELITIS OPTICA SPECTRUM DISORDER
     Route: 041
  3. AMOXICILLIN;CLAVULANIC ACID [Concomitant]
     Active Substance: AMOXICILLIN\CLAVULANIC ACID
     Route: 042
  4. IVERMECTIN. [Concomitant]
     Active Substance: IVERMECTIN
  5. MEROPENEM. [Concomitant]
     Active Substance: MEROPENEM

REACTIONS (4)
  - COVID-19 [Unknown]
  - Intentional product use issue [Unknown]
  - Respiratory failure [Unknown]
  - Off label use [Unknown]
